FAERS Safety Report 4764399-9 (Version None)
Quarter: 2005Q3

REPORT INFORMATION
  Report Type: 
  Country: None (occurrence: None)
  Receive Date: 20050906
  Receipt Date: 20050824
  Transmission Date: 20060218
  Serious: Yes (Hospitalization)
  Sender: FDA-Public Use
  Company Number: HQWYE095324AUG05

PATIENT
  Age: 79 Year
  Sex: Female

DRUGS (9)
  1. PANTOZOL (PANTOPRAZOLE, TABLET, DELAYED RELEASE) [Suspect]
     Indication: HELICOBACTER INFECTION
     Dosage: 40 MG 2X PER 1 DAY ORAL
     Route: 048
     Dates: start: 20050620
  2. AMOXICILLIN [Suspect]
     Indication: HELICOBACTER INFECTION
     Dosage: 1000 MG 2X PER 1 DAY ORAL
     Route: 048
     Dates: start: 20050620
  3. CLARITHROMYCIN [Suspect]
     Indication: HELICOBACTER INFECTION
     Dosage: 500 MG 2X PER 1 DAY ORAL
     Route: 048
     Dates: start: 20050620
  4. ASPIRIN [Concomitant]
  5. DIOVAN [Concomitant]
  6. AMLODIPINE [Concomitant]
  7. BISOPROLOL FUMARATE [Concomitant]
  8. IBUPROFEN [Concomitant]
  9. AQUAPHOR (XIPAMIDE) [Concomitant]

REACTIONS (1)
  - ANAPHYLACTIC REACTION [None]
